FAERS Safety Report 8533410-1 (Version None)
Quarter: 2012Q3

REPORT INFORMATION
  Report Type: 
  Country: None (occurrence: None)
  Receive Date: 20120724
  Receipt Date: 20120718
  Transmission Date: 20120928
  Serious: Yes (Hospitalization)
  Sender: FDA-Public Use
  Company Number: PHHY2012FR062458

PATIENT
  Sex: Male

DRUGS (10)
  1. NEORAL [Suspect]
     Dosage: 75 MG, BID
  2. NEORAL [Suspect]
     Indication: PROPHYLAXIS AGAINST GRAFT VERSUS HOST DISEASE
     Route: 048
     Dates: start: 20110404
  3. IMIPENEM AND CILASTATIN SODIUM [Concomitant]
     Dosage: 500 MG, BID
  4. VALACYCLOVIR HYDROCHLORIDE [Concomitant]
     Dosage: 1 DF, BID
  5. PENTACARINAT [Concomitant]
  6. ESOMEPRAZOLE [Concomitant]
     Dosage: 40 MG, QHS
  7. BACTRIM DS [Concomitant]
     Dosage: 1 DF, THREE TIMES A WEEK
  8. FRESUBIN [Concomitant]
     Dosage: 500 ML, UNK
  9. METHOTREXATE [Concomitant]
     Indication: PROPHYLAXIS AGAINST GRAFT VERSUS HOST DISEASE
  10. PREDNISONE TAB [Concomitant]
     Dosage: 60 MG, IN MORNING

REACTIONS (17)
  - SUBARACHNOID HAEMORRHAGE [None]
  - MUSCULOSKELETAL STIFFNESS [None]
  - IMMUNOSUPPRESSANT DRUG LEVEL DECREASED [None]
  - CONFUSIONAL STATE [None]
  - INTRAVENTRICULAR HAEMORRHAGE [None]
  - THROMBOCYTOPENIA [None]
  - ASPERGILLOSIS [None]
  - BONE MARROW FAILURE [None]
  - MUCOSAL INFLAMMATION [None]
  - HYPERTENSION [None]
  - POSTERIOR REVERSIBLE ENCEPHALOPATHY SYNDROME [None]
  - CONVULSION [None]
  - FALL [None]
  - IMMUNOSUPPRESSANT DRUG LEVEL INCREASED [None]
  - PYREXIA [None]
  - ASTHENIA [None]
  - PURPURA [None]
